FAERS Safety Report 9908420 (Version 1)
Quarter: 2014Q1

REPORT INFORMATION
  Report Type: Spontaneous
  Country: US (occurrence: None)
  Receive Date: 20140214
  Receipt Date: 20140214
  Transmission Date: 20141002
  Serious: Yes (Hospitalization)
  Sender: FDA-Public Use
  Company Number: None

PATIENT
  Age: 80 Year
  Sex: Female
  Weight: 84.7 kg

DRUGS (9)
  1. LISINOPRIL [Suspect]
     Indication: HYPERTENSION
     Dosage: CHRONIC
     Route: 048
  2. COREG [Concomitant]
  3. ASA [Concomitant]
  4. NEXIUM [Concomitant]
  5. LACTULOSE [Concomitant]
  6. TYLENOL [Concomitant]
  7. VITAMIN C [Concomitant]
  8. CENTRUM MVI [Concomitant]
  9. VICODIN [Concomitant]

REACTIONS (3)
  - Angioedema [None]
  - Dehydration [None]
  - Hypotension [None]
